FAERS Safety Report 9275712 (Version 2)
Quarter: 2014Q1

REPORT INFORMATION
  Report Type: Other
  Country: GB (occurrence: GB)
  Receive Date: 20130507
  Receipt Date: 20140306
  Transmission Date: 20141002
  Serious: Yes (Hospitalization)
  Sender: FDA-Public Use
  Company Number: GB-PERRIGO-13GB004656

PATIENT
  Age: 49 Year
  Sex: Female

DRUGS (20)
  1. IBUPROFEN 16028/0013 200 MG [Suspect]
     Indication: INTENTIONAL OVERDOSE
     Dosage: 4800 MG, SINGLE
     Route: 048
     Dates: start: 20130124, end: 20130124
  2. PARACETAMOL 16028/0012 500 MG [Suspect]
     Indication: INTENTIONAL OVERDOSE
     Dosage: 8000 MG, SINGLE
     Route: 048
     Dates: start: 20130124, end: 20130124
  3. ASPIRIN 16028/0026 75 MG [Suspect]
     Indication: INTENTIONAL OVERDOSE
     Dosage: UNK,SINGLE
     Route: 048
     Dates: start: 20130124, end: 20130124
  4. BISOPROLOL [Suspect]
     Indication: INTENTIONAL OVERDOSE
     Dosage: 560 MG, SINGLE
     Route: 048
     Dates: start: 20130124, end: 20130124
  5. BISOPROLOL [Suspect]
     Dosage: UNK
     Route: 048
     Dates: end: 20140206
  6. CLOPIDOGREL [Suspect]
     Indication: INTENTIONAL OVERDOSE
     Dosage: 2100 MG, SINGLE
     Route: 048
     Dates: start: 20130124, end: 20140124
  7. CLOPIDOGREL [Suspect]
     Dosage: UNK
     Route: 048
     Dates: end: 20140206
  8. FLUOXETINE [Suspect]
     Indication: INTENTIONAL OVERDOSE
     Dosage: 1120 MG, SINGLE
     Route: 048
     Dates: start: 20130124, end: 20130124
  9. FLUOXETINE [Suspect]
     Dosage: UNK
     Route: 048
     Dates: start: 20130124, end: 20140206
  10. FUROSEMIDE [Suspect]
     Indication: INTENTIONAL OVERDOSE
     Dosage: 1120 MG, SINGLE
     Route: 048
     Dates: start: 20130124, end: 20130124
  11. RAMIPRIL [Suspect]
     Indication: INTENTIONAL OVERDOSE
     Dosage: 140 MG, SINGLE
     Route: 048
     Dates: start: 20130124, end: 20130124
  12. RAMIPRIL [Suspect]
     Dosage: UNK
     Route: 048
     Dates: end: 20140206
  13. ZAPONEX [Suspect]
     Indication: INTENTIONAL OVERDOSE
     Dosage: OVERDOSE (UNKNOWN DOSE)
     Route: 048
     Dates: start: 20130124, end: 20130124
  14. ZAPONEX [Suspect]
     Indication: SCHIZOPHRENIA
     Dosage: UNK
     Route: 048
     Dates: start: 20041014, end: 20130123
  15. ZAPONEX [Suspect]
     Dosage: UNK
     Route: 048
     Dates: start: 20130304, end: 20140206
  16. OLANZAPINE [Suspect]
     Indication: PRODUCT USED FOR UNKNOWN INDICATION
     Dosage: UNK
     Route: 065
     Dates: end: 20140206
  17. GAVISCON [Concomitant]
     Indication: GASTRITIS
     Dosage: 10 MG, QD
     Route: 048
  18. GAVISCON [Concomitant]
     Indication: DYSPEPSIA
  19. LANSOPRAZOLE [Concomitant]
     Indication: GASTRITIS
     Dosage: 30 MG, QD
     Route: 048
  20. LANSOPRAZOLE [Concomitant]
     Indication: DYSPEPSIA

REACTIONS (11)
  - Intentional overdose [Recovered/Resolved]
  - Coma scale abnormal [Unknown]
  - Confusional state [Unknown]
  - Agitation [Unknown]
  - Dysarthria [None]
  - Faecal incontinence [Unknown]
  - Renal failure acute [Recovered/Resolved]
  - Alanine aminotransferase increased [Recovered/Resolved]
  - Hypercholesterolaemia [Not Recovered/Not Resolved]
  - Blood alkaline phosphatase increased [Unknown]
  - Treatment noncompliance [Recovered/Resolved]
